FAERS Safety Report 5468532-5 (Version None)
Quarter: 2007Q3

REPORT INFORMATION
  Report Type: 
  Country: None (occurrence: None)
  Receive Date: 20070926
  Receipt Date: 20070823
  Transmission Date: 20080115
  Serious: No
  Sender: FDA-Public Use
  Company Number: US-BRISTOL-MYERS SQUIBB COMPANY-13888334

PATIENT
  Age: 38 Year
  Sex: Female

DRUGS (3)
  1. ORENCIA [Suspect]
     Indication: RHEUMATOID ARTHRITIS
     Route: 042
     Dates: start: 20070816, end: 20070816
  2. METHOTREXATE BRAND UNKNOWN [Concomitant]
  3. VOLTAREN [Concomitant]

REACTIONS (1)
  - URTICARIA [None]
